FAERS Safety Report 7545340-2 (Version None)
Quarter: 2011Q2

REPORT INFORMATION
  Report Type: 
  Country: None (occurrence: None)
  Receive Date: 20110607
  Receipt Date: 20110523
  Transmission Date: 20111010
  Serious: Yes (Other)
  Sender: FDA-Public Use
  Company Number: 2011MA006278

PATIENT
  Sex: Female

DRUGS (1)
  1. METOCLOPRAMIDE [Suspect]
     Dates: start: 20000101, end: 20100601

REACTIONS (3)
  - TARDIVE DYSKINESIA [None]
  - FAMILY STRESS [None]
  - EMOTIONAL DISORDER [None]
